FAERS Safety Report 5940992-2 (Version None)
Quarter: 2008Q4

REPORT INFORMATION
  Report Type: 
  Country: None (occurrence: None)
  Receive Date: 20081104
  Receipt Date: 20081029
  Transmission Date: 20090506
  Serious: Yes (Life-Threatening, Hospitalization, Disabling, Other)
  Sender: FDA-Public Use
  Company Number: PHHY2008JP21801

PATIENT
  Sex: Male
  Weight: 68 kg

DRUGS (5)
  1. VOLTAREN [Suspect]
     Indication: NASOPHARYNGITIS
     Dosage: 25 MG
     Route: 048
     Dates: start: 20070826, end: 20070830
  2. VOLTAREN [Suspect]
     Indication: PYREXIA
  3. PL (NON-PYRINE COLD PREPARATION) [Concomitant]
     Indication: NASOPHARYNGITIS
     Dosage: 3 G
     Route: 048
     Dates: start: 20080826, end: 20080830
  4. LEVOFLOXACIN [Concomitant]
     Indication: NASOPHARYNGITIS
     Dosage: 300 MG
     Route: 048
     Dates: start: 20080826, end: 20080830
  5. LEVOFLOXACIN [Concomitant]
     Indication: PYREXIA

REACTIONS (21)
  - BLOOD ALKALINE PHOSPHATASE INCREASED [None]
  - BLOOD CREATININE INCREASED [None]
  - BLOOD GLUCOSE ABNORMAL [None]
  - BLOOD INSULIN DECREASED [None]
  - BLOOD UREA INCREASED [None]
  - DEHYDRATION [None]
  - INFECTION [None]
  - INSULIN C-PEPTIDE DECREASED [None]
  - LIP SWELLING [None]
  - LIVER DISORDER [None]
  - ORAL MUCOSA EROSION [None]
  - POLYURIA [None]
  - PROTEIN URINE PRESENT [None]
  - PRURITUS GENERALISED [None]
  - RASH PAPULAR [None]
  - RENAL FAILURE ACUTE [None]
  - THIRST [None]
  - TYPE 1 DIABETES MELLITUS [None]
  - URINE KETONE BODY [None]
  - URTICARIA [None]
  - WEIGHT DECREASED [None]
